FAERS Safety Report 4920094-4 (Version None)
Quarter: 2006Q1

REPORT INFORMATION
  Report Type: 
  Country: None (occurrence: None)
  Receive Date: 20060223
  Receipt Date: 20060221
  Transmission Date: 20060701
  Serious: Yes (Other)
  Sender: FDA-Public Use
  Company Number: US-GLAXOSMITHKLINE-A0594593A

PATIENT
  Age: 72 Year
  Sex: Female

DRUGS (6)
  1. COMMIT [Suspect]
     Indication: SMOKING CESSATION THERAPY
     Dosage: 4MG SEE DOSAGE TEXT
     Route: 002
     Dates: start: 20060220, end: 20060201
  2. NICODERM CQ [Suspect]
     Indication: SMOKING CESSATION THERAPY
     Dosage: 21MG UNKNOWN
     Route: 062
     Dates: start: 20060214
  3. CLINDAMYCIN HCL [Concomitant]
  4. PHENYTOIN [Concomitant]
  5. WARFARIN SODIUM [Concomitant]
  6. DILAUDID [Concomitant]

REACTIONS (4)
  - HALLUCINATION [None]
  - HEADACHE [None]
  - INTENTIONAL DRUG MISUSE [None]
  - OVERDOSE [None]
